FAERS Safety Report 5483920-9 (Version None)
Quarter: 2007Q4

REPORT INFORMATION
  Report Type: 
  Country: None (occurrence: None)
  Receive Date: 20071012
  Receipt Date: 20071002
  Transmission Date: 20080405
  Serious: No
  Sender: FDA-Public Use
  Company Number: DE-BAXTER-2007BH008053

PATIENT
  Age: 5 Year
  Sex: Female
  Weight: 17 kg

DRUGS (4)
  1. GAMMAGARD LIQUID [Suspect]
     Indication: KAWASAKI'S DISEASE
     Route: 042
     Dates: start: 20070925, end: 20070925
  2. ACETYLSALICYLIC ACID [Concomitant]
     Indication: KAWASAKI'S DISEASE
     Route: 042
     Dates: start: 20070925, end: 20070929
  3. CEFUROXIME [Concomitant]
     Indication: PNEUMONIA
     Route: 065
     Dates: start: 20070921, end: 20070927
  4. CLARITHROMYCIN [Concomitant]
     Indication: PNEUMONIA
     Route: 048
     Dates: start: 20070923, end: 20070928

REACTIONS (3)
  - FLANK PAIN [None]
  - POLYDIPSIA [None]
  - TACHYCARDIA [None]
